FAERS Safety Report 10732655 (Version 1)
Quarter: 2015Q1

REPORT INFORMATION
  Report Type: Spontaneous
  Country: US (occurrence: US)
  Receive Date: 20150123
  Receipt Date: 20150123
  Transmission Date: 20150721
  Serious: No
  Sender: FDA-Public Use
  Company Number: US-MYLANLABS-2014SP000083

PATIENT
  Sex: Male
  Weight: 91.61 kg

DRUGS (7)
  1. LYRICA [Suspect]
     Active Substance: PREGABALIN
  2. METHOTREXATE [Suspect]
     Active Substance: METHOTREXATE
     Indication: PRODUCT USED FOR UNKNOWN INDICATION
  3. REMICADE [Concomitant]
     Active Substance: INFLIXIMAB
  4. NEURONTIN [Suspect]
     Active Substance: GABAPENTIN
  5. ENBREL [Suspect]
     Active Substance: ETANERCEPT
     Route: 058
  6. HUMIRA [Suspect]
     Active Substance: ADALIMUMAB
  7. ALLOPURINOL. [Concomitant]
     Active Substance: ALLOPURINOL

REACTIONS (3)
  - Treatment failure [Unknown]
  - Drug ineffective [Unknown]
  - Drug hypersensitivity [Unknown]
